FAERS Safety Report 6007701-2 (Version None)
Quarter: 2008Q4

REPORT INFORMATION
  Report Type: 
  Country: None (occurrence: None)
  Receive Date: 20081217
  Receipt Date: 20080516
  Transmission Date: 20090506
  Serious: No
  Sender: FDA-Public Use
  Company Number: US-ASTRAZENECA-2008UW10199

PATIENT
  Age: 82 Year
  Sex: Male
  Weight: 90.7 kg

DRUGS (9)
  1. CRESTOR [Suspect]
     Indication: BLOOD CHOLESTEROL INCREASED
     Route: 048
     Dates: start: 20080523
  2. GEMFIBROZIL [Concomitant]
  3. KEPPRA [Concomitant]
  4. PRILOSEC [Concomitant]
  5. LOPRESSOR [Concomitant]
  6. ASPIRIN [Concomitant]
  7. PLAVIX [Concomitant]
  8. AMLODIPINE [Concomitant]
  9. BENAZEPRIL HYDROCHLORIDE [Concomitant]

REACTIONS (1)
  - HYPERAESTHESIA [None]
